FAERS Safety Report 24382840 (Version 1)
Quarter: 2024Q4

REPORT INFORMATION
  Report Type: Spontaneous
  Country: US (occurrence: US)
  Receive Date: 20241001
  Receipt Date: 20241001
  Transmission Date: 20250114
  Serious: Yes (Other)
  Sender: MERCK
  Company Number: US-009507513-2409USA009113

PATIENT
  Sex: Female

DRUGS (1)
  1. KEYTRUDA [Suspect]
     Active Substance: PEMBROLIZUMAB
     Indication: Triple negative breast cancer
     Dosage: UNK, Q3W
     Route: 042
     Dates: start: 202311

REACTIONS (4)
  - Mastectomy [Unknown]
  - Lymphadenectomy [Unknown]
  - Fatigue [Recovered/Resolved]
  - Physiotherapy [Unknown]
